FAERS Safety Report 5002652-4 (Version None)
Quarter: 2006Q2

REPORT INFORMATION
  Report Type: 
  Country: None (occurrence: None)
  Receive Date: 20060510
  Receipt Date: 20060424
  Transmission Date: 20061013
  Serious: Yes (Disabling)
  Sender: FDA-Public Use
  Company Number: 8015818

PATIENT
  Age: 22 Year
  Sex: Female
  Weight: 55 kg

DRUGS (5)
  1. KEPPRA [Suspect]
     Indication: EPILEPSY
     Dosage: 1500 MG 2/D PO
     Route: 048
     Dates: start: 20020401
  2. DIHYDANTOIN [Concomitant]
  3. GINKOR FORT [Concomitant]
  4. L-THYROXINE [Concomitant]
  5. TRANSIPEG [Concomitant]

REACTIONS (4)
  - CONSTIPATION [None]
  - GENERALISED OEDEMA [None]
  - HYPOTHYROIDISM [None]
  - WEIGHT INCREASED [None]
